FAERS Safety Report 7112180-8 (Version None)
Quarter: 2010Q4

REPORT INFORMATION
  Report Type: 
  Country: None (occurrence: None)
  Receive Date: 20101119
  Receipt Date: 20100226
  Transmission Date: 20110411
  Serious: No
  Sender: FDA-Public Use
  Company Number: A0843742A

PATIENT
  Age: 69 Year
  Sex: Male

DRUGS (3)
  1. AVODART [Suspect]
     Dosage: .5MG PER DAY
     Route: 048
     Dates: start: 20090801
  2. DOXAZOSIN MESYLATE [Concomitant]
  3. LIPITOR [Concomitant]

REACTIONS (4)
  - BREAST ENLARGEMENT [None]
  - ERECTILE DYSFUNCTION [None]
  - SEMEN VOLUME DECREASED [None]
  - THERAPEUTIC RESPONSE UNEXPECTED [None]
